FAERS Safety Report 4684189-5 (Version None)
Quarter: 2005Q2

REPORT INFORMATION
  Report Type: 
  Country: None (occurrence: None)
  Receive Date: 20050607
  Receipt Date: 20050524
  Transmission Date: 20051028
  Serious: Yes (Hospitalization)
  Sender: FDA-Public Use
  Company Number: GB-GLAXOSMITHKLINE-B0382207A

PATIENT
  Age: 42 Year
  Sex: Female
  Weight: 56.4 kg

DRUGS (10)
  1. LAMIVUDINE [Suspect]
     Indication: HIV INFECTION
     Dosage: 2UNIT PER DAY
     Route: 048
     Dates: start: 20031001, end: 20050419
  2. DIDANOSINE [Suspect]
     Indication: HIV INFECTION
     Dosage: 250MG PER DAY
     Route: 048
     Dates: start: 20031001, end: 20050419
  3. TENOFOVIR [Suspect]
     Indication: HIV INFECTION
     Dosage: 245MG PER DAY
     Route: 048
     Dates: start: 20031001, end: 20050419
  4. BENDROFLUAZIDE [Suspect]
     Indication: HYPERTENSION
     Dosage: 2.5MG PER DAY
     Route: 048
     Dates: start: 20040126, end: 20050424
  5. CO-AMOXICLAV [Concomitant]
     Dosage: 375MG THREE TIMES PER DAY
     Route: 048
     Dates: start: 20050201, end: 20050201
  6. TRANEXAMIC ACID [Concomitant]
     Indication: MENORRHAGIA
     Dosage: 500MG FOUR TIMES PER DAY
     Route: 048
     Dates: start: 20050126, end: 20050301
  7. CO-TRIMOXAZOLE [Concomitant]
     Indication: INFECTION PROPHYLAXIS
     Dosage: 480MG IN THE MORNING
     Route: 048
  8. PAROXETINE HCL [Concomitant]
     Indication: DEPRESSION
     Dosage: 20MG IN THE MORNING
     Route: 048
  9. HYOSCINE N-BUTYLBROMIDE [Concomitant]
     Indication: INTESTINAL SPASM
     Dosage: 20MG THREE TIMES PER DAY
     Route: 048
     Dates: start: 20041108
  10. MEBENDAZOLE [Concomitant]
     Indication: ENTEROBIASIS
     Dosage: 100MG SINGLE DOSE
     Route: 048
     Dates: start: 20050302, end: 20050302

REACTIONS (6)
  - HEPATIC STEATOSIS [None]
  - HYPOKALAEMIA [None]
  - HYPOPHOSPHATAEMIA [None]
  - LACTIC ACIDOSIS [None]
  - LIVER FUNCTION TEST ABNORMAL [None]
  - VOMITING [None]
